FAERS Safety Report 24410165 (Version 1)
Quarter: 2024Q4

REPORT INFORMATION
  Report Type: Spontaneous
  Country: ES (occurrence: ES)
  Receive Date: 20241008
  Receipt Date: 20241008
  Transmission Date: 20250115
  Serious: Yes (Other)
  Sender: CELLTRION
  Company Number: ES-SAMSUNG BIOEPIS-SB-2024-10135

PATIENT

DRUGS (2)
  1. ADALIMUMAB [Suspect]
     Active Substance: ADALIMUMAB
     Indication: Inflammatory bowel disease
  2. MESALAMINE [Suspect]
     Active Substance: MESALAMINE
     Indication: Crohn^s disease

REACTIONS (11)
  - Bronchiectasis [Unknown]
  - Condition aggravated [Unknown]
  - Tonsillar hypertrophy [Unknown]
  - Anal abscess [Unknown]
  - Actinomycosis [Unknown]
  - Diarrhoea [Unknown]
  - Abdominal discomfort [Unknown]
  - Oral mucosal erythema [Unknown]
  - Lung infiltration [Unknown]
  - Abdominal pain [Unknown]
  - Therapy non-responder [Unknown]
